FAERS Safety Report 6742079-8 (Version None)
Quarter: 2010Q2

REPORT INFORMATION
  Report Type: 
  Country: None (occurrence: None)
  Receive Date: 20100524
  Receipt Date: 20100511
  Transmission Date: 20101027
  Serious: Yes (Life-Threatening, Hospitalization)
  Sender: FDA-Public Use
  Company Number: 011664

PATIENT
  Sex: Female
  Weight: 8.5 kg

DRUGS (3)
  1. KEPPRA [Suspect]
     Indication: EPILEPSY
     Dosage: 125 MG QD ORAL
     Route: 048
     Dates: start: 20100504
  2. CHLORPHENAMINE [Suspect]
     Indication: UPPER RESPIRATORY TRACT INFECTION
     Dosage: 2 Q TID ORAL
     Route: 048
     Dates: start: 20100502, end: 20100504
  3. HERBAL PREPARATION (PEDIATRIC KECHUANGLINE) [Suspect]
     Indication: UPPER RESPIRATORY TRACT INFECTION
     Dosage: 5 ML TID ORAL
     Route: 048
     Dates: start: 20100502, end: 20100504

REACTIONS (1)
  - RASH MACULO-PAPULAR [None]
